FAERS Safety Report 6166601-8 (Version None)
Quarter: 2009Q2

REPORT INFORMATION
  Report Type: 
  Country: None (occurrence: None)
  Receive Date: 20090424
  Receipt Date: 20080619
  Transmission Date: 20091009
  Serious: No
  Sender: FDA-Public Use
  Company Number: US-ASTRAZENECA-2008UW12398

PATIENT
  Age: 43 Year
  Sex: Female
  Weight: 97.5 kg

DRUGS (3)
  1. ZOMIG [Suspect]
     Indication: MIGRAINE
     Route: 048
  2. SYNTHROID [Concomitant]
  3. COUMADIN [Concomitant]

REACTIONS (4)
  - ANXIETY [None]
  - DEPRESSION [None]
  - MUSCULOSKELETAL STIFFNESS [None]
  - SOMNOLENCE [None]
